FAERS Safety Report 18912582 (Version 2)
Quarter: 2021Q2

REPORT INFORMATION
  Report Type: Spontaneous
  Country: US (occurrence: US)
  Receive Date: 20210219
  Receipt Date: 20210512
  Transmission Date: 20210717
  Serious: No
  Sender: FDA-Public Use
  Company Number: US-AMAG PHARMACEUTICALS, INC.-AMAG202100459

PATIENT
  Age: 23 Year
  Sex: Female

DRUGS (2)
  1. AUTO?INJECTOR [DEVICE] [Suspect]
     Active Substance: DEVICE
     Indication: PREMATURE DELIVERY
  2. MAKENA [Suspect]
     Active Substance: HYDROXYPROGESTERONE CAPROATE
     Indication: PREMATURE DELIVERY
     Dosage: 275MG/1.1ML
     Route: 058
     Dates: start: 202010, end: 20210202

REACTIONS (1)
  - Solar lentigo [Unknown]

NARRATIVE: CASE EVENT DATE: 20201101
